FAERS Safety Report 9753689 (Version 2)
Quarter: 2013Q4

REPORT INFORMATION
  Report Type: Spontaneous
  Country: US (occurrence: US)
  Receive Date: 20131213
  Receipt Date: 20131213
  Transmission Date: 20140711
  Serious: No
  Sender: FDA-Public Use
  Company Number: US-GILEAD-2009-0026033

PATIENT
  Sex: Female
  Weight: 68.04 kg

DRUGS (14)
  1. LETAIRIS [Suspect]
     Indication: PULMONARY ARTERIAL HYPERTENSION
     Route: 048
     Dates: start: 20091125, end: 20091211
  2. REVATIO [Concomitant]
  3. LASIX [Concomitant]
  4. HCTZ [Concomitant]
  5. NORVASC [Concomitant]
  6. VASOTEC [Concomitant]
  7. VITAMIN E [Concomitant]
  8. NEXIUM [Concomitant]
  9. POTASSIUM CHLORIDE [Concomitant]
  10. METOCLOPRAMIDE [Concomitant]
  11. ASCORBIC ACID [Concomitant]
  12. B COMPLEX VITAMINS [Concomitant]
  13. CALCIUM (ELEMENTAL) [Concomitant]
  14. MULTIVITAMIN [Concomitant]

REACTIONS (4)
  - Cough [Unknown]
  - Local swelling [Unknown]
  - Nasal congestion [Unknown]
  - Dyspnoea [Unknown]
